FAERS Safety Report 12700021 (Version 1)
Quarter: 2016Q3

REPORT INFORMATION
  Report Type: Spontaneous
  Country: ID (occurrence: ID)
  Receive Date: 20160830
  Receipt Date: 20160830
  Transmission Date: 20161109
  Serious: Yes (Other)
  Sender: FDA-Public Use
  Company Number: ID-UCBSA-2016032864

PATIENT
  Age: 39 Year
  Sex: Male

DRUGS (8)
  1. KEPPRA [Suspect]
     Active Substance: LEVETIRACETAM
     Indication: SEIZURE
     Dosage: 250 MG, 2X/DAY (BID)
     Route: 048
     Dates: start: 201505, end: 2015
  2. KEPPRA [Suspect]
     Active Substance: LEVETIRACETAM
     Dosage: MISSED DOSE
     Dates: start: 2016, end: 2016
  3. KEPPRA [Suspect]
     Active Substance: LEVETIRACETAM
     Dosage: 500 MG, 2X/DAY (BID)
     Dates: start: 201507, end: 2016
  4. KEPPRA [Suspect]
     Active Substance: LEVETIRACETAM
     Dosage: 250 MG, 2X/DAY (BID)
     Dates: start: 2016, end: 2016
  5. KEPPRA [Suspect]
     Active Substance: LEVETIRACETAM
     Dosage: 500 MG, 2X/DAY (BID)
     Dates: start: 2016
  6. DILANTIN [Suspect]
     Active Substance: PHENYTOIN
     Indication: SEIZURE
     Dosage: 100 MG, 3X/DAY (TID)
     Route: 048
     Dates: start: 2014
  7. FRISIUM [Concomitant]
     Active Substance: CLOBAZAM
     Indication: PRODUCT USED FOR UNKNOWN INDICATION
     Dosage: UNK
     Dates: start: 201607
  8. KEPPRA [Suspect]
     Active Substance: LEVETIRACETAM
     Dosage: 250 MG IN MORNING AND 500 MG IN EVENING, 2X/DAY (BID)
     Dates: start: 2016, end: 2016

REACTIONS (7)
  - Drug dependence [Unknown]
  - Headache [Unknown]
  - Procedural pain [Unknown]
  - Seizure [Not Recovered/Not Resolved]
  - Intentional product misuse [Unknown]
  - Treatment noncompliance [Unknown]
  - Drug dose omission [Unknown]

NARRATIVE: CASE EVENT DATE: 201505
